FAERS Safety Report 5842553-2 (Version None)
Quarter: 2008Q3

REPORT INFORMATION
  Report Type: 
  Country: None (occurrence: None)
  Receive Date: 20080812
  Receipt Date: 20080728
  Transmission Date: 20090109
  Serious: Yes (Hospitalization)
  Sender: FDA-Public Use
  Company Number: GB-PFIZER INC-2008063113

PATIENT
  Sex: Male

DRUGS (1)
  1. LYRICA [Suspect]
     Route: 048

REACTIONS (6)
  - NAUSEA [None]
  - PYREXIA [None]
  - TREMOR [None]
  - VIRAL INFECTION [None]
  - VISION BLURRED [None]
  - VISUAL IMPAIRMENT [None]
